FAERS Safety Report 8444426-8 (Version None)
Quarter: 2012Q2

REPORT INFORMATION
  Report Type: 
  Country: None (occurrence: None)
  Receive Date: 20120612
  Receipt Date: 20120612
  Transmission Date: 20120825
  Serious: No
  Sender: FDA-Public Use
  Company Number: None

PATIENT

DRUGS (2)
  1. AMPHOTERICIN B [Suspect]
  2. AMPHOTERICIN B [Suspect]

REACTIONS (5)
  - MEDICATION ERROR [None]
  - ELECTROLYTE IMBALANCE [None]
  - ANAEMIA [None]
  - RENAL FAILURE [None]
  - DRUG DISPENSING ERROR [None]
